FAERS Safety Report 10472601 (Version 4)
Quarter: 2014Q4

REPORT INFORMATION
  Report Type: Spontaneous
  Country: JP (occurrence: JP)
  Receive Date: 20140924
  Receipt Date: 20141125
  Transmission Date: 20150528
  Serious: Yes (Hospitalization, Other)
  Sender: FDA-Public Use
  Company Number: JP-ASTELLAS-2014JP014755AA

PATIENT
  Age: 68 Year
  Sex: Male
  Weight: 56 kg

DRUGS (11)
  1. OXYCONTIN [Suspect]
     Active Substance: OXYCODONE HYDROCHLORIDE
     Indication: CANCER PAIN
     Route: 048
     Dates: start: 20140529, end: 20140810
  2. ZOMETA [Concomitant]
     Active Substance: ZOLEDRONIC ACID
     Indication: METASTASES TO BONE
     Route: 065
     Dates: start: 20110511, end: 20140703
  3. XTANDI [Suspect]
     Active Substance: ENZALUTAMIDE
     Indication: HORMONE-REFRACTORY PROSTATE CANCER
     Route: 048
     Dates: start: 20140626, end: 20140723
  4. DECADRON [Suspect]
     Active Substance: DEXAMETHASONE
     Indication: HORMONE-REFRACTORY PROSTATE CANCER
     Route: 048
     Dates: start: 20101215, end: 20140625
  5. XTANDI [Suspect]
     Active Substance: ENZALUTAMIDE
     Route: 048
     Dates: start: 20140801
  6. TAXOTERE [Concomitant]
     Active Substance: DOCETAXEL
     Indication: HORMONE-REFRACTORY PROSTATE CANCER
     Route: 065
     Dates: start: 20110510, end: 20140529
  7. GONAX [Concomitant]
     Active Substance: DEGARELIX
     Indication: HORMONE-REFRACTORY PROSTATE CANCER
     Route: 058
     Dates: start: 20140310, end: 20140310
  8. ADALAT [Concomitant]
     Active Substance: NIFEDIPINE
     Indication: HYPERTENSION
     Route: 048
  9. OLMETEC [Concomitant]
     Active Substance: OLMESARTAN MEDOXOMIL
     Indication: HYPERTENSION
     Route: 048
  10. GONAX [Concomitant]
     Active Substance: DEGARELIX
     Route: 058
     Dates: start: 20140410
  11. URIEF [Concomitant]
     Active Substance: SILODOSIN
     Indication: BENIGN PROSTATIC HYPERPLASIA
     Route: 048

REACTIONS (3)
  - Decreased appetite [Recovered/Resolved]
  - Dyskinesia [Not Recovered/Not Resolved]
  - Malaise [Recovered/Resolved]

NARRATIVE: CASE EVENT DATE: 20140710
